FAERS Safety Report 4502009-6 (Version None)
Quarter: 2004Q4

REPORT INFORMATION
  Report Type: 
  Country: None (occurrence: None)
  Receive Date: 20041115
  Receipt Date: 20041115
  Transmission Date: 20050328
  Serious: No
  Sender: FDA-Public Use
  Company Number: None

PATIENT
  Age: 77 Year
  Sex: Male
  Weight: 86.2 kg

DRUGS (10)
  1. HEPARIN SODIUM [Suspect]
  2. CLOPIDOGREL TAB [Suspect]
     Dosage: 75MGPO
     Route: 048
     Dates: start: 20040503, end: 20040515
  3. ASPIRIN TAB [Suspect]
     Dosage: 325MGPO
     Route: 048
     Dates: start: 20040503, end: 20040515
  4. METOPROLOL [Concomitant]
  5. FUROSEMIDE [Concomitant]
  6. ACETAMINOPHEN [Concomitant]
  7. DEXTROSE [Concomitant]
  8. SIMVASTATIN [Concomitant]
  9. INSULIN HUMAN REGULAR [Concomitant]
  10. IPRATROPIUM BROMIDE [Concomitant]

REACTIONS (1)
  - HAEMATURIA [None]
